FAERS Safety Report 8854159 (Version 5)
Quarter: 2012Q4

REPORT INFORMATION
  Report Type: 
  Country: JP (occurrence: JP)
  Receive Date: 20121022
  Receipt Date: 20121129
  Transmission Date: 20130627
  Serious: Yes (Hospitalization, Disabling)
  Sender: FDA-Public Use
  Company Number: KR-NAPPMUNDI-GBR-2012-0011655

PATIENT
  Age: 84 Year
  Sex: Female

DRUGS (9)
  1. BUPRENORPHINE TRANSDERMAL SYSTEM 5 MG [Suspect]
     Indication: BACK PAIN
     Dosage: 5 mcg, q1h
     Route: 062
     Dates: start: 20120822, end: 20120903
  2. BUPRENORPHINE TRANSDERMAL SYSTEM 5 MG [Suspect]
     Indication: PAIN
  3. MOBIC [Suspect]
     Indication: ARTHRALGIA
     Dosage: 10 mg, daily
     Route: 048
     Dates: start: 20110511, end: 20120903
  4. MOBIC [Suspect]
     Indication: NECK PAIN
  5. MOBIC [Suspect]
     Indication: OSTEOPOROSIS
  6. LYRICA [Suspect]
     Indication: NEURALGIA
     Dosage: 25 mg, daily
     Route: 048
     Dates: start: 20120213, end: 20120903
  7. PRIMPERAN [Suspect]
     Indication: VOMITING
     Dosage: 15 mg, daily
     Route: 048
     Dates: start: 20120822, end: 20120903
  8. WARKMIN [Suspect]
     Indication: OSTEOPOROSIS
     Dosage: 1.0 mcg, daily
     Route: 048
     Dates: start: 20110511, end: 20120903
  9. CARBOCAIN [Concomitant]
     Indication: PAIN
     Dosage: 3 Ampule, weekly
     Route: 042
     Dates: start: 20110511, end: 20120828

REACTIONS (2)
  - Intestinal obstruction [Recovered/Resolved]
  - Constipation [Recovered/Resolved]
